FAERS Safety Report 25275713 (Version 1)
Quarter: 2025Q2

REPORT INFORMATION
  Report Type: Spontaneous
  Country: CN (occurrence: CN)
  Receive Date: 20250507
  Receipt Date: 20250507
  Transmission Date: 20250717
  Serious: Yes (Hospitalization, Other)
  Sender: BAXTER
  Company Number: None

PATIENT
  Age: 56 Year
  Sex: Female
  Weight: 68 kg

DRUGS (4)
  1. CYCLOPHOSPHAMIDE [Suspect]
     Active Substance: CYCLOPHOSPHAMIDE
     Indication: Breast cancer female
     Dosage: 1 G, EVERY 3 WK, SECOND CYCLE OF CHEMOTHERAPY
     Route: 041
     Dates: start: 20250410, end: 20250410
  2. SODIUM CHLORIDE [Suspect]
     Active Substance: SODIUM CHLORIDE
     Indication: Medication dilution
     Dosage: 500 ML, EVERY 3 WK (0.9 % DISSOLVED WITH DOCETAXEL)
     Route: 041
     Dates: start: 20250410, end: 20250410
  3. SODIUM CHLORIDE [Suspect]
     Active Substance: SODIUM CHLORIDE
     Dosage: 50 ML, EVERY 3 WK (0.9% DISSOLVED WITH CYCLOPHOSPHAMIDE)
     Route: 041
     Dates: start: 20250410, end: 20250410
  4. DOCETAXEL [Suspect]
     Active Substance: DOCETAXEL
     Indication: Breast cancer female
     Dosage: 120 MG, EVERY 3 WK,  SECOND CYCLE OF CHEMOTHERAPY
     Route: 041
     Dates: start: 20250410, end: 20250410

REACTIONS (3)
  - Myelosuppression [Recovered/Resolved]
  - Asthenia [Unknown]
  - Pyrexia [Unknown]

NARRATIVE: CASE EVENT DATE: 20250418
